FAERS Safety Report 10204554 (Version 1)
Quarter: 2014Q2

REPORT INFORMATION
  Report Type: Spontaneous
  Country: US (occurrence: None)
  Receive Date: 20140527
  Receipt Date: 20140527
  Transmission Date: 20141212
  Serious: Yes (Hospitalization)
  Sender: FDA-Public Use
  Company Number: None

PATIENT
  Age: 70 Year
  Sex: Male

DRUGS (7)
  1. AUGMENTIN [Suspect]
     Indication: INFECTION
     Dates: start: 20130304, end: 20130314
  2. CEFTRIAXONE [Suspect]
     Indication: INFECTION
     Dosage: 2 INJECTIONS
     Dates: start: 20130228, end: 20130304
  3. HYZAAR [Concomitant]
  4. DEXILANT [Concomitant]
  5. ULORIC [Concomitant]
  6. CHOLESTYRAMINE [Concomitant]
  7. OMEPRAZOLE [Concomitant]

REACTIONS (8)
  - Jaundice [None]
  - Cholestatic liver injury [None]
  - Inflammation [None]
  - Hepatic steatosis [None]
  - Fibrosis [None]
  - Hepatic cirrhosis [None]
  - Antinuclear antibody positive [None]
  - Cholecystitis acute [None]
